FAERS Safety Report 16590888 (Version 1)
Quarter: 2019Q3

REPORT INFORMATION
  Report Type: Spontaneous
  Country: IN (occurrence: IN)
  Receive Date: 20190717
  Receipt Date: 20190717
  Transmission Date: 20191004
  Serious: Yes (Hospitalization, Disabling)
  Sender: FDA-Public Use
  Company Number: None

PATIENT
  Age: 22 Year
  Sex: Male
  Weight: 58 kg

DRUGS (1)
  1. MINOXIDIL 5% [Suspect]
     Active Substance: MINOXIDIL
     Indication: HAIR GROWTH ABNORMAL

REACTIONS (4)
  - Discharge [None]
  - Swelling face [None]
  - Weight increased [None]
  - Jaundice [None]

NARRATIVE: CASE EVENT DATE: 20180706
